FAERS Safety Report 4422324-4 (Version None)
Quarter: 2004Q3

REPORT INFORMATION
  Report Type: 
  Country: None (occurrence: None)
  Receive Date: 20040810
  Receipt Date: 20040708
  Transmission Date: 20050211
  Serious: Yes (Hospitalization, Other)
  Sender: FDA-Public Use
  Company Number: GB-GLAXOSMITHKLINE-B0338405A

PATIENT
  Age: 43 Year
  Sex: Male

DRUGS (6)
  1. ZYBAN [Suspect]
     Route: 048
     Dates: start: 20040626, end: 20040707
  2. MIXTARD HUMAN 70/30 [Concomitant]
     Dosage: 40UNIT TWICE PER DAY
     Route: 058
  3. PRAVASTATIN [Concomitant]
     Route: 048
  4. ATENOLOL [Concomitant]
     Route: 048
  5. ASPIRIN [Concomitant]
     Route: 048
  6. RAMIPRIL [Concomitant]
     Route: 048

REACTIONS (2)
  - ORBITAL OEDEMA [None]
  - RASH PAPULAR [None]
